FAERS Safety Report 14616129 (Version 1)
Quarter: 2018Q1

REPORT INFORMATION
  Report Type: Spontaneous
  Country: FR (occurrence: DE)
  Receive Date: 20180309
  Receipt Date: 20180309
  Transmission Date: 20180509
  Serious: Yes (Life-Threatening, Disabling, Other)
  Sender: FDA-Public Use
  Company Number: DE-MERCK KGAA-2043387

PATIENT
  Age: 11 Year
  Sex: Female
  Weight: 47 kg

DRUGS (4)
  1. STRATTERA [Suspect]
     Active Substance: ATOMOXETINE HYDROCHLORIDE
     Route: 048
  2. STRATTERA [Suspect]
     Active Substance: ATOMOXETINE HYDROCHLORIDE
     Route: 048
     Dates: start: 20160701
  3. NOVOTHYROX [Suspect]
     Active Substance: LEVOTHYROXINE SODIUM
     Indication: PRODUCT USED FOR UNKNOWN INDICATION
  4. STRATTERA [Suspect]
     Active Substance: ATOMOXETINE HYDROCHLORIDE
     Route: 048
     Dates: end: 20170801

REACTIONS (4)
  - Suicide attempt [Recovered/Resolved]
  - Personality change [Recovered/Resolved]
  - Intentional self-injury [Recovered/Resolved]
  - Aggression [Recovered/Resolved]
